FAERS Safety Report 14565520 (Version 2)
Quarter: 2018Q1

REPORT INFORMATION
  Report Type: Spontaneous
  Country: US (occurrence: US)
  Receive Date: 20180223
  Receipt Date: 20180226
  Transmission Date: 20180509
  Serious: Yes (Hospitalization)
  Sender: FDA-Public Use
  Company Number: US-ROCHE-2072990

PATIENT
  Age: 16 Year
  Sex: Male

DRUGS (2)
  1. DAYQUIL COUGH [Concomitant]
     Indication: PRODUCT USED FOR UNKNOWN INDICATION
  2. TAMIFLU [Suspect]
     Active Substance: OSELTAMIVIR PHOSPHATE
     Indication: INFLUENZA
     Dosage: FOR 5 DAYS
     Route: 065
     Dates: start: 201802, end: 201802

REACTIONS (4)
  - Haematochezia [Recovered/Resolved]
  - Haemoglobin decreased [Recovered/Resolved]
  - Haematemesis [Recovered/Resolved]
  - Gastritis haemorrhagic [Recovered/Resolved]

NARRATIVE: CASE EVENT DATE: 201802
